FAERS Safety Report 6429313-9 (Version None)
Quarter: 2009Q4

REPORT INFORMATION
  Report Type: 
  Country: None (occurrence: None)
  Receive Date: 20091105
  Receipt Date: 20091030
  Transmission Date: 20100525
  Serious: Yes (Disabling)
  Sender: FDA-Public Use
  Company Number: JP-ABBOTT-09P-087-0603113-00

PATIENT
  Age: 55 Year
  Sex: Male
  Weight: 67 kg

DRUGS (13)
  1. SEVOFRANE [Suspect]
     Indication: MAINTENANCE OF ANAESTHESIA
     Route: 055
     Dates: start: 20080710, end: 20080710
  2. SEVOFRANE [Suspect]
     Indication: INDUCTION OF ANAESTHESIA
  3. PROPOFOL [Concomitant]
     Indication: INDUCTION OF ANAESTHESIA
     Route: 040
     Dates: start: 20080710, end: 20080710
  4. FENTANYL-100 [Concomitant]
     Indication: ANALGESIC THERAPY
     Route: 042
     Dates: start: 20080710, end: 20080710
  5. FENTANYL-100 [Concomitant]
  6. ROCURONIUM BROMIDE [Concomitant]
     Indication: HYPOTONIA
  7. OXYGEN [Concomitant]
     Indication: MAINTENANCE OF ANAESTHESIA
     Route: 055
  8. REMIFENTANIL HYDROCHLORIDE [Concomitant]
     Indication: ANALGESIC THERAPY
     Dosage: 0.25 - 1.0 MICROGRAM/KG/MIN
     Route: 042
     Dates: start: 20080710, end: 20080710
  9. LANDIOLOL HYDROCHLORIDE [Concomitant]
     Indication: TACHYCARDIA
     Route: 042
  10. EPHEDRINE HYDROCHLORIDE [Concomitant]
     Indication: BLOOD PRESSURE DECREASED
     Route: 042
  11. ATROPINE SULFATE HYDRATE [Concomitant]
     Indication: ANAESTHESIA REVERSAL
     Route: 042
  12. NEOSTIGMINE [Concomitant]
     Indication: ANAESTHESIA REVERSAL
     Route: 042
  13. NALOXONE HYDROCHLORIDE [Concomitant]
     Indication: MAINTENANCE OF ANAESTHESIA
     Route: 042
     Dates: start: 20080710

REACTIONS (1)
  - CEREBRAL DISORDER [None]
